FAERS Safety Report 8972000 (Version 1)
Quarter: 2012Q4

REPORT INFORMATION
  Report Type: 
  Country: GB (occurrence: GB)
  Receive Date: 20121218
  Receipt Date: 20121218
  Transmission Date: 20130627
  Serious: Yes (Other)
  Sender: FDA-Public Use
  Company Number: GB-TEVA-375767ISR

PATIENT
  Age: 75 Year
  Sex: Female
  Weight: 45.36 kg

DRUGS (40)
  1. NYSTATIN [Concomitant]
     Dates: start: 20120910, end: 20120912
  2. NYSTATIN [Concomitant]
     Dates: start: 20120924, end: 20120926
  3. NYSTATIN [Concomitant]
     Dates: start: 20121010, end: 20121012
  4. NYSTATIN [Concomitant]
     Dates: start: 20121029, end: 20121031
  5. SALBUTAMOL [Concomitant]
     Dates: start: 20120924, end: 20120929
  6. SALBUTAMOL [Concomitant]
     Dates: start: 20121010, end: 20121015
  7. SALBUTAMOL [Concomitant]
     Dates: start: 20121108, end: 20121113
  8. SOFRADEX [Concomitant]
     Dates: start: 20120925, end: 20121009
  9. FLUCLOXACILLIN [Concomitant]
     Dates: start: 20121005, end: 20121012
  10. DIPROBASE [Concomitant]
     Dates: start: 20121010, end: 20121011
  11. EPADERM [Concomitant]
     Dates: start: 20121010, end: 20121011
  12. ALLEVYN [Concomitant]
     Dates: start: 20121108
  13. CALCIPOTRIOL [Concomitant]
     Dates: start: 20121108, end: 20121113
  14. CLARITHROMYCIN [Concomitant]
     Dates: start: 20121126
  15. AZITHROMYCIN [Suspect]
     Indication: PROPHYLAXIS
     Dates: start: 20120820
  16. MANEVAC [Concomitant]
     Dates: start: 20120611
  17. FUROSEMIDE [Concomitant]
     Dates: start: 20120712
  18. AMITRIPTYLINE HYDROCHLORIDE [Concomitant]
     Dates: start: 20120731, end: 20121126
  19. CALCIUM CARBONATE [Concomitant]
     Dates: start: 20120731
  20. COLISTIMETHATE [Concomitant]
     Dates: start: 20120731
  21. CORACTEN [Concomitant]
     Dates: start: 20120731, end: 20120830
  22. CORACTEN [Concomitant]
     Dates: start: 20120924, end: 20121128
  23. FLIXONASE [Concomitant]
     Dates: start: 20120731, end: 20121126
  24. GLYCEROL [Concomitant]
     Dates: start: 20120731
  25. OMEPRAZOLE [Concomitant]
     Dates: start: 20120731, end: 20121126
  26. SENNA [Concomitant]
     Dates: start: 20120731
  27. BETAMETHASONE SODIUM PHOSPHATE [Concomitant]
     Dates: start: 20120820, end: 20121126
  28. BUPRENORPHINE [Concomitant]
     Dates: start: 20120820, end: 20121126
  29. BECLOMETASONE [Concomitant]
     Dates: start: 20120822, end: 20120829
  30. BECLOMETASONE [Concomitant]
     Dates: start: 20120924, end: 20121001
  31. BECLOMETASONE [Concomitant]
     Dates: start: 20121029, end: 20121105
  32. BIOXTRA [Concomitant]
     Dates: start: 20120822, end: 20121115
  33. CARMELLOSE [Concomitant]
     Dates: start: 20120822, end: 20121017
  34. DIFFLAM [Concomitant]
     Dates: start: 20120822, end: 20121124
  35. LACTULOSE [Concomitant]
     Dates: start: 20120822, end: 20121124
  36. PARACETAMOL [Concomitant]
     Dates: start: 20120822, end: 20121123
  37. SODIUM CHLORIDE [Concomitant]
     Dates: start: 20120822, end: 20121121
  38. GAVISCON ADVANCE [Concomitant]
     Dates: start: 20120910, end: 20120913
  39. GAVISCON ADVANCE [Concomitant]
     Dates: start: 20120924, end: 20120927
  40. GAVISCON ADVANCE [Concomitant]
     Dates: start: 20121029, end: 20121101

REACTIONS (1)
  - Wheezing [Recovering/Resolving]
